FAERS Safety Report 24371144 (Version 1)
Quarter: 2024Q3

REPORT INFORMATION
  Report Type: Spontaneous
  Country: GR (occurrence: GR)
  Receive Date: 20240927
  Receipt Date: 20240927
  Transmission Date: 20241017
  Serious: Yes (Death, Other)
  Sender: CELLTRION
  Company Number: GR-DEM-006922

PATIENT

DRUGS (5)
  1. RITUXIMAB [Suspect]
     Active Substance: RITUXIMAB
     Indication: High-grade B-cell lymphoma
     Dosage: UNK
     Dates: start: 202211, end: 202301
  2. RITUXIMAB [Suspect]
     Active Substance: RITUXIMAB
     Dosage: UNK
     Dates: start: 20230411
  3. RITUXIMAB [Suspect]
     Active Substance: RITUXIMAB
     Dosage: UNK
  4. LENALIDOMIDE [Suspect]
     Active Substance: LENALIDOMIDE
     Indication: High-grade B-cell lymphoma
     Dosage: UNK
     Dates: start: 20230411
  5. TAFASITAMAB [Suspect]
     Active Substance: TAFASITAMAB
     Indication: High-grade B-cell lymphoma
     Dosage: UNK
     Route: 042
     Dates: start: 20230411

REACTIONS (3)
  - Death [Fatal]
  - Off label use [Fatal]
  - Seizure [Unknown]

NARRATIVE: CASE EVENT DATE: 20230411
